FAERS Safety Report 4812982-4 (Version None)
Quarter: 2005Q4

REPORT INFORMATION
  Report Type: 
  Country: None (occurrence: None)
  Receive Date: 20051028
  Receipt Date: 20050531
  Transmission Date: 20060501
  Serious: No
  Sender: FDA-Public Use
  Company Number: US-GLAXOSMITHKLINE-A0560570A

PATIENT
  Age: 47 Year
  Sex: Female

DRUGS (5)
  1. ADVAIR DISKUS 100/50 [Suspect]
     Indication: ASTHMA
     Dosage: 1PUFF TWICE PER DAY
     Route: 055
     Dates: start: 20050301
  2. SYNTHROID [Concomitant]
  3. ALLEGRA [Concomitant]
  4. NASONEX SPRAY [Concomitant]
  5. VITAMIN [Concomitant]

REACTIONS (3)
  - BACK PAIN [None]
  - INSOMNIA [None]
  - PHARMACEUTICAL PRODUCT COMPLAINT [None]
